FAERS Safety Report 7138252-X (Version None)
Quarter: 2010Q4

REPORT INFORMATION
  Report Type: 
  Country: None (occurrence: None)
  Receive Date: 20101202
  Receipt Date: 20101202
  Transmission Date: 20110411
  Serious: Yes (Life-Threatening, Hospitalization)
  Sender: FDA-Public Use
  Company Number: None

PATIENT
  Age: 36 Year
  Sex: Male
  Weight: 128 kg

DRUGS (2)
  1. LORAZEPAM [Suspect]
     Dosage: 15 MG ONCE PO
     Route: 048
     Dates: start: 20101027, end: 20101027
  2. PROPRANOLOL [Suspect]
     Dosage: 200 MG ONCE PO
     Route: 048
     Dates: start: 20101027, end: 20101027

REACTIONS (5)
  - AGITATION [None]
  - CONFUSIONAL STATE [None]
  - DEPRESSION [None]
  - MULTIPLE DRUG OVERDOSE INTENTIONAL [None]
  - SEDATION [None]
